FAERS Safety Report 8304439-3 (Version None)
Quarter: 2012Q2

REPORT INFORMATION
  Report Type: 
  Country: None (occurrence: None)
  Receive Date: 20120423
  Receipt Date: 20110418
  Transmission Date: 20120825
  Serious: No
  Sender: FDA-Public Use
  Company Number: US-COVIDIEN/TYCO HEALTHCARE/MALLINCKRODT-T201100811

PATIENT
  Age: 64 Year
  Sex: Female

DRUGS (9)
  1. CALCIUM [Concomitant]
  2. METHYLIN [Suspect]
     Indication: NARCOLEPSY
     Dosage: 10 MG  QID
     Route: 048
     Dates: start: 20110325, end: 20110417
  3. MUCINEX [Concomitant]
  4. DOXYCYCLINE [Concomitant]
     Indication: NERVOUS SYSTEM DISORDER
     Dosage: 100 MG, QD
  5. SYMBICORT [Concomitant]
  6. AMITRIPTYLINE HCL [Concomitant]
  7. VITAMINS                           /90003601/ [Concomitant]
  8. NEURONTIN [Concomitant]
     Dosage: 100 MG, UNK
  9. PRILOSEC [Concomitant]

REACTIONS (4)
  - INCREASED APPETITE [None]
  - IMPAIRED DRIVING ABILITY [None]
  - FATIGUE [None]
  - SOMNOLENCE [None]
